FAERS Safety Report 6746234-2 (Version None)
Quarter: 2010Q2

REPORT INFORMATION
  Report Type: 
  Country: None (occurrence: None)
  Receive Date: 20100528
  Receipt Date: 20091007
  Transmission Date: 20101027
  Serious: No
  Sender: FDA-Public Use
  Company Number: US-ASTRAZENECA-2009SE18588

PATIENT
  Age: 59 Year
  Sex: Female
  Weight: 80.3 kg

DRUGS (8)
  1. PRILOSEC [Suspect]
     Indication: OROPHARYNGEAL PAIN
     Route: 048
     Dates: start: 20090401, end: 20091007
  2. SEROQUEL [Concomitant]
  3. ASPIRIN [Concomitant]
  4. OXYCONTIN [Concomitant]
     Indication: HEADACHE
  5. LEVOTHYROXINE SODIUM [Concomitant]
     Indication: THYROID DISORDER
  6. EFFEXOR [Concomitant]
  7. XANAX [Concomitant]
  8. DEPAKOTE [Concomitant]
     Indication: TREMOR

REACTIONS (3)
  - DRUG INEFFECTIVE [None]
  - OROPHARYNGEAL PAIN [None]
  - THROAT IRRITATION [None]
